FAERS Safety Report 6134640-9 (Version None)
Quarter: 2009Q1

REPORT INFORMATION
  Report Type: 
  Country: None (occurrence: None)
  Receive Date: 20090327
  Receipt Date: 20090318
  Transmission Date: 20090719
  Serious: Yes (Hospitalization)
  Sender: FDA-Public Use
  Company Number: US-BIOGENIDEC-2008BI027430

PATIENT
  Age: 26 Year
  Sex: Female

DRUGS (2)
  1. AVONEX [Suspect]
     Indication: MULTIPLE SCLEROSIS
     Route: 030
     Dates: start: 20060701, end: 20080228
  2. AVONEX [Suspect]
     Route: 030
     Dates: start: 20080901, end: 20081001

REACTIONS (2)
  - ABASIA [None]
  - MUSCLE SPASMS [None]
